FAERS Safety Report 23522262 (Version 3)
Quarter: 2024Q3

REPORT INFORMATION
  Report Type: Report from Study
  Country: HU (occurrence: HU)
  Receive Date: 20240214
  Receipt Date: 20240808
  Transmission Date: 20241016
  Serious: Yes (Hospitalization)
  Sender: NOVARTIS
  Company Number: HU-002147023-NVSC2024HU028479

PATIENT
  Sex: Female

DRUGS (1)
  1. KISQALI [Suspect]
     Active Substance: RIBOCICLIB
     Indication: Product used for unknown indication
     Dosage: 600 MG, QD, 3X200 MG AT ONCE DAILY IN THE  MORNING
     Route: 048
     Dates: start: 20240111, end: 20240205

REACTIONS (5)
  - Condition aggravated [Unknown]
  - Somnolence [Unknown]
  - Asthenia [Unknown]
  - Cardiac failure [Not Recovered/Not Resolved]
  - Concomitant disease aggravated [Not Recovered/Not Resolved]

NARRATIVE: CASE EVENT DATE: 20240205
